FAERS Safety Report 9803576 (Version 1)
Quarter: 2014Q1

REPORT INFORMATION
  Report Type: Spontaneous
  Country: US (occurrence: US)
  Receive Date: 20140108
  Receipt Date: 20140108
  Transmission Date: 20141002
  Serious: No
  Sender: FDA-Public Use
  Company Number: US-GLAXOSMITHKLINE-A1009011A

PATIENT
  Age: 58 Year
  Sex: Female

DRUGS (15)
  1. LOVAZA [Suspect]
     Indication: BLOOD TRIGLYCERIDES INCREASED
     Dosage: 4CAP PER DAY
     Route: 048
  2. METFORMIN [Concomitant]
  3. CYMBALTA [Concomitant]
  4. BENAZEPRIL [Concomitant]
  5. TENORMIN [Concomitant]
  6. RANITIDINE [Concomitant]
  7. TRICOR [Concomitant]
  8. NORETHINDRONE [Concomitant]
  9. ZETIA [Concomitant]
  10. OXYCONTIN [Concomitant]
  11. IBUPROFEN [Concomitant]
  12. LORTAB [Concomitant]
  13. FLEXERIL [Concomitant]
  14. ADVAIR [Concomitant]
  15. ALBUTEROL INHALER [Concomitant]

REACTIONS (1)
  - Eructation [Not Recovered/Not Resolved]
